FAERS Safety Report 20052006 (Version 1)
Quarter: 2021Q4

REPORT INFORMATION
  Report Type: Spontaneous
  Country: US (occurrence: US)
  Receive Date: 20211110
  Receipt Date: 20211110
  Transmission Date: 20220303
  Serious: Yes (Other)
  Sender: FDA-Public Use
  Company Number: US-GLAXOSMITHKLINE-US2021GSK230336

PATIENT
  Sex: Female

DRUGS (7)
  1. ZANTAC [Suspect]
     Active Substance: RANITIDINE HYDROCHLORIDE
     Indication: Hernia
     Dosage: UNK UNK, QD
     Route: 065
     Dates: start: 201201, end: 201912
  2. ZANTAC [Suspect]
     Active Substance: RANITIDINE HYDROCHLORIDE
     Indication: Hernia
     Dosage: UNK UNK, QD
     Route: 065
     Dates: start: 201201, end: 201912
  3. ZANTAC [Suspect]
     Active Substance: RANITIDINE HYDROCHLORIDE
     Indication: Hernia
     Dosage: UNK UNK, QD
     Route: 065
     Dates: start: 201201, end: 201912
  4. RANITIDINE HYDROCHLORIDE [Suspect]
     Active Substance: RANITIDINE HYDROCHLORIDE
     Indication: Hernia
     Dosage: UNK, DAILY/WEEKLY
     Route: 065
     Dates: start: 201201, end: 201912
  5. RANITIDINE HYDROCHLORIDE [Suspect]
     Active Substance: RANITIDINE HYDROCHLORIDE
     Indication: Hernia
     Dosage: UNK, DAILY/WEEEKLY
     Route: 065
     Dates: start: 201201, end: 201912
  6. RANITIDINE [Suspect]
     Active Substance: RANITIDINE
     Indication: Hernia
     Dosage: UNK, DAILY/WEEKLY
     Route: 065
     Dates: start: 201201, end: 201912
  7. RANITIDINE [Suspect]
     Active Substance: RANITIDINE
     Indication: Hernia
     Dosage: UNK, DAILY/WEEKLY
     Route: 065
     Dates: start: 201201, end: 201912

REACTIONS (1)
  - Breast cancer [Unknown]
